FAERS Safety Report 9009712 (Version 1)
Quarter: 2013Q1

REPORT INFORMATION
  Report Type: Spontaneous
  Country: US (occurrence: US)
  Receive Date: 20130111
  Receipt Date: 20130111
  Transmission Date: 20140127
  Serious: Yes (Other)
  Sender: FDA-Public Use
  Company Number: US-009507513-1004USA01863

PATIENT
  Age: 4 Year
  Sex: Male
  Weight: 22.68 kg

DRUGS (2)
  1. SINGULAIR [Suspect]
     Indication: ASTHMA
     Dosage: 10 MG, QD
     Route: 048
     Dates: start: 20050520, end: 20071122
  2. SINGULAIR [Suspect]
     Indication: HYPERSENSITIVITY

REACTIONS (10)
  - Attention deficit/hyperactivity disorder [Not Recovered/Not Resolved]
  - Aggression [Unknown]
  - Anxiety [Not Recovered/Not Resolved]
  - Hallucination [Unknown]
  - Nightmare [Recovered/Resolved]
  - Pain in extremity [Recovered/Resolved]
  - Sensory disturbance [Not Recovered/Not Resolved]
  - Aggression [Unknown]
  - Aggression [Recovered/Resolved]
  - Balance disorder [Unknown]
